FAERS Safety Report 12206312 (Version 1)
Quarter: 2016Q1

REPORT INFORMATION
  Report Type: Spontaneous
  Country: SE (occurrence: SE)
  Receive Date: 20160324
  Receipt Date: 20160324
  Transmission Date: 20160526
  Serious: Yes (Hospitalization)
  Sender: FDA-Public Use
  Company Number: SE-ROCHE-1731101

PATIENT
  Age: 35 Year
  Sex: Female

DRUGS (11)
  1. SODIUM BICARBONATE. [Concomitant]
     Active Substance: SODIUM BICARBONATE
     Route: 065
     Dates: start: 20160205
  2. DUROFERON [Concomitant]
     Active Substance: FERROUS SULFATE\FERROUS SULFATE, DRIED
     Dosage: REPORTED AS DUROFERON 100 MG FE2+ DEPOTTABLETT
     Route: 065
  3. SIMVASTATIN. [Concomitant]
     Active Substance: SIMVASTATIN
     Dosage: REPORTED AS SIMVASTATIN SANDOZ
     Route: 065
  4. DOSTINEX [Concomitant]
     Active Substance: CABERGOLINE
     Route: 065
  5. FERINJECT [Concomitant]
     Active Substance: FERRIC CARBOXYMALTOSE
     Dosage: 50 MG FE / ML SOLUTION FOR INJECTION / INFUSION
     Route: 065
  6. ARANESP [Concomitant]
     Active Substance: DARBEPOETIN ALFA
     Route: 065
  7. MABTHERA [Suspect]
     Active Substance: RITUXIMAB
     Indication: IGA NEPHROPATHY
     Dosage: 500 MG  OF 2 MG / ML AND DOSING 250
     Route: 042
     Dates: start: 20160224
  8. RENVELA [Concomitant]
     Active Substance: SEVELAMER CARBONATE
     Route: 065
  9. ETALPHA [Concomitant]
     Active Substance: ALFACALCIDOL
     Route: 065
  10. CHOLECALCIFEROL [Concomitant]
     Active Substance: CHOLECALCIFEROL
     Route: 065
  11. CALCITUGG [Concomitant]
     Route: 065

REACTIONS (2)
  - Nephrotic syndrome [Recovered/Resolved]
  - Haematuria [Recovered/Resolved]

NARRATIVE: CASE EVENT DATE: 20160224
